FAERS Safety Report 21830454 (Version 2)
Quarter: 2024Q4

REPORT INFORMATION
  Report Type: Spontaneous
  Country: CA (occurrence: CA)
  Receive Date: 20230106
  Receipt Date: 20241031
  Transmission Date: 20250115
  Serious: Yes (Hospitalization)
  Sender: MERCK
  Company Number: CA-009507513-2301CAN000927

PATIENT
  Age: 61 Year
  Sex: Female
  Weight: 86 kg

DRUGS (14)
  1. EMEND [Suspect]
     Active Substance: APREPITANT
     Indication: Product used for unknown indication
     Dosage: UNK
     Route: 065
  2. EMEND [Suspect]
     Active Substance: APREPITANT
     Dosage: UNK
     Route: 065
  3. EMEND [Suspect]
     Active Substance: APREPITANT
     Dosage: 6.0 MILLIGRAM, QD
     Route: 065
  4. CISPLATIN [Suspect]
     Active Substance: CISPLATIN
     Indication: Product used for unknown indication
     Dosage: 204 MILLIGRAM, ONCE
     Route: 042
  5. CISPLATIN [Suspect]
     Active Substance: CISPLATIN
     Dosage: 204 MILLIGRAM, QD
     Route: 042
  6. CYTARABINE [Suspect]
     Active Substance: CYTARABINE
     Indication: Product used for unknown indication
     Dosage: 4080 MILLIGRAM, 1 EVERY 1 DAYS, ROUTE OF ADMINISTRATION: INTRATHECAL
  7. DEXAMETHASONE [Suspect]
     Active Substance: DEXAMETHASONE
     Indication: Product used for unknown indication
     Dosage: 40 MILLIGRAM, 1 EVERY 1 DAYS
     Route: 065
  8. MAXIDEX [Suspect]
     Active Substance: DEXAMETHASONE
     Indication: Product used for unknown indication
     Dosage: 2.0 DOSAGE FORM, Q6H, DOSAGE FORM: DROPS OPTHALMIC
     Route: 047
  9. MAXIDEX [Suspect]
     Active Substance: DEXAMETHASONE
     Dosage: 2.0 DOSAGE FORM, Q6H, DOSAGE FORM: DROPS OPTHALMIC
     Route: 047
  10. MAXIDEX [Suspect]
     Active Substance: DEXAMETHASONE
     Dosage: 2.0 DOSAGE FORM, Q6H, DOSAGE FORM: DROPS OPTHALMIC
     Route: 047
  11. FILGRASTIM [Suspect]
     Active Substance: FILGRASTIM
     Indication: Neutropenia
     Dosage: 6 MILLIGRAM, QD
     Route: 065
  12. PANTOPRAZOLE [Suspect]
     Active Substance: PANTOPRAZOLE
     Indication: Product used for unknown indication
     Dosage: 40.0 MILLIGRAM
     Route: 065
  13. PANTOPRAZOLE MAGNESIUM [Suspect]
     Active Substance: PANTOPRAZOLE MAGNESIUM
     Indication: Product used for unknown indication
     Dosage: 40 MILLIGRAM
     Route: 065
  14. RITUXIMAB [Suspect]
     Active Substance: RITUXIMAB
     Indication: Product used for unknown indication
     Dosage: 770 MILLIGRAM, ONCE

REACTIONS (5)
  - Fluid intake reduced [Unknown]
  - Feeding disorder [Recovered/Resolved]
  - Neutrophil count decreased [Recovered/Resolved]
  - Vomiting [Recovered/Resolved]
  - Dysgeusia [Recovered/Resolved]
